FAERS Safety Report 21881090 (Version 1)
Quarter: 2023Q1

REPORT INFORMATION
  Report Type: Spontaneous
  Country: US (occurrence: US)
  Receive Date: 20230118
  Receipt Date: 20230118
  Transmission Date: 20230417
  Serious: Yes (Other)
  Sender: FDA-Public Use
  Company Number: US-BRISTOL-MYERS SQUIBB COMPANY-2023-006776

PATIENT
  Age: 54 Year
  Sex: Male
  Weight: 80.5 kg

DRUGS (1)
  1. ABECMA [Suspect]
     Active Substance: IDECABTAGENE VICLEUCEL
     Indication: Plasma cell myeloma
     Route: 042
     Dates: start: 20220915, end: 20220915

REACTIONS (8)
  - Fatigue [Unknown]
  - Malaise [Unknown]
  - Chills [Unknown]
  - Tachycardia [Unknown]
  - Hypoalbuminaemia [Unknown]
  - Decreased appetite [Unknown]
  - Diarrhoea [Unknown]
  - Cytokine release syndrome [Unknown]

NARRATIVE: CASE EVENT DATE: 20220916
